FAERS Safety Report 9409451 (Version 2)
Quarter: 2013Q3

REPORT INFORMATION
  Report Type: Spontaneous
  Country: US (occurrence: US)
  Receive Date: 20130719
  Receipt Date: 20130809
  Transmission Date: 20140515
  Serious: Yes (Hospitalization)
  Sender: FDA-Public Use
  Company Number: US-B.I. PHARMACEUTICALS,INC./RIDGEFIELD-2013-BI-20604BP

PATIENT
  Age: 69 Year
  Sex: Female

DRUGS (9)
  1. COMBIVENT [Suspect]
     Indication: CHRONIC OBSTRUCTIVE PULMONARY DISEASE
     Dosage: STRENGTH: 20 MCG / 100 MCG; DOSE: 80 MCG/400 MCG.
     Route: 055
     Dates: start: 20130701
  2. COMBIVENT [Suspect]
     Indication: ASTHMA
  3. COMBIVENT [Suspect]
     Indication: CHRONIC OBSTRUCTIVE PULMONARY DISEASE
     Dosage: STRENGTH: 18 MCG / 103 MCG; DOSE: 144 MCG/824 MCG
     Route: 055
     Dates: start: 2009, end: 20130702
  4. COMBIVENT [Suspect]
     Indication: DYSPNOEA
     Dosage: STRENGTH: 18 MCG / 103 MCG; DOSE: 144 MCG/824 MCG
     Route: 055
     Dates: start: 20130714
  5. COMBIVENT [Suspect]
     Indication: ASTHMA
  6. SYMBICORT [Concomitant]
     Indication: CHRONIC OBSTRUCTIVE PULMONARY DISEASE
     Dosage: FORMULATION:  INHAILATION AEROSOLE; STRERNTH: 2 INHALATIONS; DOSE: 4 INHALATIONS
     Route: 055
     Dates: start: 2007
  7. SYMBICORT [Concomitant]
     Indication: ASTHMA
  8. LORATIDINE [Concomitant]
     Indication: HYPERSENSITIVITY
     Dosage: 10 MG
     Route: 048
  9. OVER THE COUNTER SUPPLEMENTS [Concomitant]
     Route: 048

REACTIONS (10)
  - Myocardial infarction [Recovered/Resolved]
  - Drug ineffective [Not Recovered/Not Resolved]
  - Dyspnoea [Not Recovered/Not Resolved]
  - Oxygen saturation decreased [Not Recovered/Not Resolved]
  - Chronic obstructive pulmonary disease [Not Recovered/Not Resolved]
  - Off label use [Not Recovered/Not Resolved]
  - Off label use [Not Recovered/Not Resolved]
  - Coronary artery occlusion [Not Recovered/Not Resolved]
  - Dizziness [Recovered/Resolved]
  - Arterial occlusive disease [Not Recovered/Not Resolved]
